FAERS Safety Report 18172585 (Version 1)
Quarter: 2020Q3

REPORT INFORMATION
  Report Type: Spontaneous
  Country: US (occurrence: US)
  Receive Date: 20200820
  Receipt Date: 20200820
  Transmission Date: 20201103
  Serious: No
  Sender: FDA-Public Use
  Company Number: US-BAUSCH-BL-2020-022917

PATIENT
  Sex: Female

DRUGS (3)
  1. TRULANCE [Suspect]
     Active Substance: PLECANATIDE
     Indication: IRRITABLE BOWEL SYNDROME
     Route: 048
  2. TRULANCE [Suspect]
     Active Substance: PLECANATIDE
     Dosage: EVERY OTHER DAY
     Route: 048
  3. ZINC OXIDE. [Concomitant]
     Active Substance: ZINC OXIDE
     Indication: PRODUCT USED FOR UNKNOWN INDICATION

REACTIONS (3)
  - Anal incontinence [Not Recovered/Not Resolved]
  - Anorectal discomfort [Not Recovered/Not Resolved]
  - Diarrhoea [Not Recovered/Not Resolved]
